FAERS Safety Report 7089627-9 (Version None)
Quarter: 2010Q4

REPORT INFORMATION
  Report Type: 
  Country: None (occurrence: None)
  Receive Date: 20101108
  Receipt Date: 20101102
  Transmission Date: 20110411
  Serious: Yes (Death, Hospitalization, Other)
  Sender: FDA-Public Use
  Company Number: JP-ELI_LILLY_AND_COMPANY-JP201010001383

PATIENT
  Sex: Male
  Weight: 61 kg

DRUGS (4)
  1. GEMZAR [Suspect]
     Indication: LUNG SQUAMOUS CELL CARCINOMA STAGE I
     Dosage: 1600 MG, OTHER
     Route: 042
     Dates: start: 20100608, end: 20100728
  2. GEMZAR [Suspect]
     Dosage: 1200 MG, OTHER
     Route: 042
     Dates: start: 20100804, end: 20100825
  3. CARBOPLATIN [Concomitant]
     Indication: LUNG SQUAMOUS CELL CARCINOMA STAGE I
     Dosage: 600 MG, OTHER
     Route: 042
     Dates: start: 20100629, end: 20100728
  4. CARBOPLATIN [Concomitant]
     Dosage: 470 MG, OTHER
     Route: 042
     Dates: start: 20100804, end: 20100825

REACTIONS (8)
  - ATRIAL FIBRILLATION [None]
  - DISSEMINATED INTRAVASCULAR COAGULATION [None]
  - INTERSTITIAL LUNG DISEASE [None]
  - MULTI-ORGAN FAILURE [None]
  - PLATELET COUNT DECREASED [None]
  - PNEUMONIA BACTERIAL [None]
  - PNEUMONIA FUNGAL [None]
  - VENOUS THROMBOSIS LIMB [None]
